FAERS Safety Report 6759204-5 (Version None)
Quarter: 2010Q2

REPORT INFORMATION
  Report Type: 
  Country: None (occurrence: None)
  Receive Date: 20100607
  Receipt Date: 20100602
  Transmission Date: 20101027
  Serious: Yes (Hospitalization)
  Sender: FDA-Public Use
  Company Number: DE-PFIZER INC-2010000902

PATIENT
  Age: 71 Year
  Sex: Female
  Weight: 57 kg

DRUGS (11)
  1. IRINOTECAN HCL [Suspect]
     Indication: COLORECTAL CANCER METASTATIC
     Dosage: 180 MG/M2, EVERY 14DAYS
     Route: 042
     Dates: start: 20091026
  2. FLUOROURACIL [Suspect]
     Indication: COLORECTAL CANCER METASTATIC
     Dosage: 2400 MG/M2, EVERY 14 DAYS
     Route: 042
     Dates: start: 20091026
  3. FLUOROURACIL [Suspect]
     Dosage: 400 MG/M2, EVERY 14DAYS
     Route: 040
     Dates: start: 20091026
  4. CETUXIMAB [Suspect]
     Indication: COLORECTAL CANCER METASTATIC
     Dosage: 250 MG/M2, WEEKLY
     Route: 042
     Dates: start: 20091026
  5. FOLINIC ACID [Suspect]
     Indication: COLORECTAL CANCER METASTATIC
     Dosage: 400 MG/M2, EVERY 14DAYS
     Route: 042
     Dates: start: 20091026
  6. ZOFRAN [Concomitant]
     Dosage: 24 MG, EVERY 2 WEEKS
     Dates: start: 20091026, end: 20091221
  7. EMEND [Concomitant]
     Dosage: 125/80MG, EVERY 2 WEEKS
     Dates: start: 20091026, end: 20091221
  8. DEXA [Concomitant]
     Dosage: 20 MG, WEEKLY
     Dates: start: 20091026, end: 20091221
  9. RANITIDINE HCL [Concomitant]
     Dosage: 50 MG, UNK
     Dates: start: 20091026, end: 20091221
  10. FENISTIL [Concomitant]
     Dosage: 4 MG, UNK
     Dates: start: 20091026, end: 20091221
  11. MAGNESIUM [Concomitant]
     Dosage: UNK

REACTIONS (1)
  - PNEUMOCYSTIS JIROVECI PNEUMONIA [None]
